FAERS Safety Report 4921472-X (Version None)
Quarter: 2006Q1

REPORT INFORMATION
  Report Type: 
  Country: None (occurrence: None)
  Receive Date: 20060222
  Receipt Date: 20060222
  Transmission Date: 20060701
  Serious: Yes (Death)
  Sender: FDA-Public Use
  Company Number: None

PATIENT
  Age: 43 Year
  Sex: Male
  Weight: 81.5 kg

DRUGS (12)
  1. FLUDARABINE PHOSPHATE [Suspect]
     Indication: NON-HODGKIN'S LYMPHOMA
     Dosage: 30MG/M2  X 4D  IV
     Route: 042
     Dates: start: 20060112
  2. FLUDARABINE PHOSPHATE [Suspect]
     Indication: NON-HODGKIN'S LYMPHOMA
     Dosage: 30MG/M2  X 4D  IV
     Route: 042
     Dates: start: 20060113
  3. FLUDARABINE PHOSPHATE [Suspect]
     Indication: NON-HODGKIN'S LYMPHOMA
     Dosage: 30MG/M2  X 4D  IV
     Route: 042
     Dates: start: 20060114
  4. FLUDARABINE PHOSPHATE [Suspect]
     Indication: NON-HODGKIN'S LYMPHOMA
     Dosage: 30MG/M2  X 4D  IV
     Route: 042
     Dates: start: 20060115
  5. CYTOXAN [Suspect]
     Dosage: 500 MG/M2  X4D IV
     Route: 042
     Dates: start: 20060112
  6. CYTOXAN [Suspect]
     Dosage: 500 MG/M2  X4D IV
     Route: 042
     Dates: start: 20060113
  7. CYTOXAN [Suspect]
     Dosage: 500 MG/M2  X4D IV
     Route: 042
     Dates: start: 20060114
  8. CYTOXAN [Suspect]
     Dosage: 500 MG/M2  X4D IV
     Route: 042
     Dates: start: 20060115
  9. CAMPATH [Suspect]
     Dosage: 20 MG X 4D IV
     Route: 042
     Dates: start: 20060113
  10. CAMPATH [Suspect]
     Dosage: 20 MG X 4D IV
     Route: 042
     Dates: start: 20060114
  11. CAMPATH [Suspect]
     Dosage: 20 MG X 4D IV
     Route: 042
     Dates: start: 20060115
  12. CAMPATH [Suspect]
     Dosage: 20 MG X 4D IV
     Route: 042
     Dates: start: 20060116

REACTIONS (4)
  - COMPLICATIONS OF TRANSPLANT SURGERY [None]
  - RESPIRATORY DISTRESS [None]
  - RESPIRATORY FAILURE [None]
  - STEM CELL TRANSPLANT [None]
